FAERS Safety Report 9122625 (Version 2)
Quarter: 2013Q2

REPORT INFORMATION
  Report Type: Report from Study
  Country: NL (occurrence: NL)
  Receive Date: 20130227
  Receipt Date: 20130514
  Transmission Date: 20140414
  Serious: Yes (Hospitalization)
  Sender: FDA-Public Use
  Company Number: NL-BAYER-2013-017621

PATIENT
  Age: 53 Year
  Sex: Female
  Weight: 59 kg

DRUGS (4)
  1. REGORAFENIB [Suspect]
     Indication: COLORECTAL CANCER METASTATIC
     Dosage: CYCLE 1, 160MG PER DAY
     Route: 048
     Dates: start: 20130114, end: 20130205
  2. REGORAFENIB [Suspect]
     Indication: COLORECTAL CANCER METASTATIC
     Dosage: CYCLE 2, 80MG PER DAY
     Route: 048
     Dates: start: 20130225, end: 20130316
  3. LIPITOR [Concomitant]
     Indication: HYPERLIPIDAEMIA
     Dosage: 20 MG, QD (OD)
     Route: 048
  4. ASCAL [Concomitant]
     Indication: TRANSIENT ISCHAEMIC ATTACK
     Dosage: 80 MG, QD (OD)
     Route: 048

REACTIONS (2)
  - Dermatitis allergic [Recovered/Resolved]
  - Thrombocytopenia [Recovered/Resolved]
